FAERS Safety Report 4688053-7 (Version None)
Quarter: 2005Q2

REPORT INFORMATION
  Report Type: 
  Country: None (occurrence: None)
  Receive Date: 20050610
  Receipt Date: 20050530
  Transmission Date: 20051028
  Serious: Yes (Other)
  Sender: FDA-Public Use
  Company Number: SE-ROCHE-406348

PATIENT
  Age: 21 Year
  Sex: Female

DRUGS (1)
  1. ROACCUTAN [Suspect]
     Indication: DRUG USE FOR UNKNOWN INDICATION
     Route: 048
     Dates: start: 20040315, end: 20050315

REACTIONS (14)
  - ANXIETY [None]
  - CHILLS [None]
  - CONTUSION [None]
  - CONVULSION [None]
  - DAYDREAMING [None]
  - DISCOMFORT [None]
  - DRY SKIN [None]
  - EPILEPSY [None]
  - EPISTAXIS [None]
  - FEELING ABNORMAL [None]
  - FEELING HOT AND COLD [None]
  - HYPERHIDROSIS [None]
  - LIP DRY [None]
  - PANIC ATTACK [None]
